FAERS Safety Report 7403672-2 (Version None)
Quarter: 2011Q2

REPORT INFORMATION
  Report Type: 
  Country: None (occurrence: None)
  Receive Date: 20110408
  Receipt Date: 20110328
  Transmission Date: 20111010
  Serious: Yes (Other)
  Sender: FDA-Public Use
  Company Number: PHEH2008US00481

PATIENT
  Sex: Male

DRUGS (33)
  1. LEVAQUIN [Concomitant]
  2. CALCIUM [Concomitant]
  3. REQUIP [Concomitant]
  4. PROVIGIL [Concomitant]
  5. ZOMETA [Suspect]
     Dosage: UNK
  6. ATORVASTATIN CALCIUM [Concomitant]
  7. CELEBREX [Concomitant]
  8. AMOXICILLIN [Concomitant]
     Dosage: UNK
  9. MICRO-K [Concomitant]
     Dosage: UNK
  10. ANTICOAGULANTS [Concomitant]
  11. QUININE SULFATE [Concomitant]
     Route: 048
  12. CYMBALTA [Concomitant]
  13. CALCITRIOL [Concomitant]
  14. VIAGRA [Concomitant]
  15. LIDODERM [Concomitant]
     Route: 062
  16. REVLIMID [Concomitant]
     Dosage: 5 MG
  17. INSULIN [Concomitant]
  18. LEUKINE [Concomitant]
  19. CYCLOPHOSPHAMIDE [Concomitant]
  20. MICRO-K [Concomitant]
  21. CEPHALEXIN [Concomitant]
     Route: 048
  22. TINZAPARIN SODIUM [Concomitant]
  23. FLEXERIL [Concomitant]
     Dosage: 5 MG, QD
     Route: 048
  24. LIPITOR [Concomitant]
     Dosage: 80 MG
  25. AREDIA [Suspect]
     Dosage: UNK
     Dates: start: 20000101
  26. PROSCAR [Concomitant]
     Dosage: 5 MG, UNK
     Route: 048
  27. NEXIUM [Concomitant]
  28. LUPRON [Concomitant]
  29. GABAPENTIN [Concomitant]
  30. VIVELLE-DOT [Concomitant]
     Dosage: 0.1 MG, QD
     Route: 062
  31. AVODART [Concomitant]
  32. THALOMID [Concomitant]
  33. FINASTERIDE [Concomitant]
     Dosage: 5 MG

REACTIONS (57)
  - BENIGN GASTRIC NEOPLASM [None]
  - MENTAL DISORDER [None]
  - VENTRICULAR TACHYCARDIA [None]
  - SUPRAVENTRICULAR EXTRASYSTOLES [None]
  - ISCHAEMIA [None]
  - CATARACT [None]
  - ARTHRALGIA [None]
  - CHEST PAIN [None]
  - MUSCLE STRAIN [None]
  - ANAEMIA [None]
  - KYPHOSIS [None]
  - CHRONIC OBSTRUCTIVE PULMONARY DISEASE [None]
  - PULMONARY FIBROSIS [None]
  - ATELECTASIS [None]
  - METASTASES TO SKIN [None]
  - CHOLELITHIASIS [None]
  - MALAISE [None]
  - LIGAMENT LAXITY [None]
  - CONTUSION [None]
  - MUSCLE SPASMS [None]
  - AGRANULOCYTOSIS [None]
  - BRADYCARDIA [None]
  - INTERVERTEBRAL DISC DEGENERATION [None]
  - SCOLIOSIS [None]
  - TOOTH ABSCESS [None]
  - PAIN [None]
  - RENAL IMPAIRMENT [None]
  - SYNCOPE [None]
  - SINUS ARRHYTHMIA [None]
  - HAEMATURIA [None]
  - SLEEP APNOEA SYNDROME [None]
  - SQUAMOUS CELL CARCINOMA [None]
  - SPINAL DISORDER [None]
  - ERECTILE DYSFUNCTION [None]
  - CONSTIPATION [None]
  - SICK SINUS SYNDROME [None]
  - ATRIAL FIBRILLATION [None]
  - MALIGNANT MELANOMA IN SITU [None]
  - OSTEOPOROSIS [None]
  - HYPERSOMNIA [None]
  - FATIGUE [None]
  - TOOTHACHE [None]
  - JOINT DISLOCATION [None]
  - HYPOGONADISM [None]
  - HOT FLUSH [None]
  - ARTHRITIS [None]
  - VENOUS THROMBOSIS [None]
  - DEPRESSION [None]
  - OSTEONECROSIS OF JAW [None]
  - METASTASES TO BONE [None]
  - RENAL FAILURE [None]
  - NEOPLASM MALIGNANT [None]
  - BASAL CELL CARCINOMA [None]
  - INTERVERTEBRAL DISC SPACE NARROWING [None]
  - NEUROPATHY PERIPHERAL [None]
  - SLEEP DISORDER DUE TO GENERAL MEDICAL CONDITION, INSOMNIA TYPE [None]
  - HEPATIC CYST [None]
